FAERS Safety Report 15968985 (Version 1)
Quarter: 2019Q1

REPORT INFORMATION
  Report Type: Spontaneous
  Country: GB (occurrence: GB)
  Receive Date: 20190215
  Receipt Date: 20190215
  Transmission Date: 20190418
  Serious: Yes (Other)
  Sender: FDA-Public Use
  Company Number: GB-MYLANLABS-2019M1012999

PATIENT
  Age: 70 Year
  Sex: Female

DRUGS (30)
  1. CLARITHROMYCIN. [Suspect]
     Active Substance: CLARITHROMYCIN
     Indication: BRONCHIECTASIS
  2. LINEZOLID. [Suspect]
     Active Substance: LINEZOLID
     Indication: BRONCHIECTASIS
  3. METHYLPREDNISOLONE. [Suspect]
     Active Substance: METHYLPREDNISOLONE
     Indication: MICROSCOPIC POLYANGIITIS
     Dosage: WEEKLY FOR 4 WEEKS
     Route: 041
  4. TOBRAMYCIN. [Suspect]
     Active Substance: TOBRAMYCIN
     Indication: STAPHYLOCOCCAL INFECTION
     Dosage: UNK
     Route: 055
  5. PREDNISOLONE. [Suspect]
     Active Substance: PREDNISOLONE
     Indication: PARAESTHESIA
  6. CYCLOPHOSPHAMIDE. [Suspect]
     Active Substance: CYCLOPHOSPHAMIDE
     Indication: MICROSCOPIC POLYANGIITIS
     Dosage: AT HIGH DOSE
     Route: 065
  7. MEROPENEM. [Concomitant]
     Active Substance: MEROPENEM
     Indication: MYCOBACTERIUM ABSCESSUS INFECTION
     Dosage: NEBULISED
     Route: 055
  8. LINEZOLID. [Suspect]
     Active Substance: LINEZOLID
     Indication: MYCOBACTERIUM ABSCESSUS INFECTION
     Route: 065
  9. MINOCYCLINE [Suspect]
     Active Substance: MINOCYCLINE\MINOCYCLINE HYDROCHLORIDE
     Indication: MYCOBACTERIUM ABSCESSUS INFECTION
     Route: 048
  10. MINOCYCLINE [Suspect]
     Active Substance: MINOCYCLINE\MINOCYCLINE HYDROCHLORIDE
     Indication: BRONCHIECTASIS
  11. CLARITHROMYCIN. [Suspect]
     Active Substance: CLARITHROMYCIN
     Indication: MYCOBACTERIUM ABSCESSUS INFECTION
     Route: 048
  12. CEFOXITIN [Concomitant]
     Active Substance: CEFOXITIN SODIUM
     Indication: MYCOBACTERIUM ABSCESSUS INFECTION
     Route: 042
  13. SULPHAMETHOXAZOLE/TRIMETHOPRIM [Suspect]
     Active Substance: SULFAMETHOXAZOLE\TRIMETHOPRIM
     Indication: MYCOBACTERIUM ABSCESSUS INFECTION
  14. TOBRAMYCIN. [Suspect]
     Active Substance: TOBRAMYCIN
     Indication: BRONCHIECTASIS
  15. CYCLOPHOSPHAMIDE. [Suspect]
     Active Substance: CYCLOPHOSPHAMIDE
     Indication: PARAESTHESIA
  16. AMIKACIN. [Concomitant]
     Active Substance: AMIKACIN
     Indication: BRONCHIECTASIS
     Dosage: MAINTENANCE THERAPY
     Route: 055
  17. CEFOXITIN [Concomitant]
     Active Substance: CEFOXITIN SODIUM
     Indication: BRONCHIECTASIS
  18. AZATHIOPRINE. [Suspect]
     Active Substance: AZATHIOPRINE
     Indication: MICROSCOPIC POLYANGIITIS
     Route: 065
  19. SULPHAMETHOXAZOLE/TRIMETHOPRIM [Suspect]
     Active Substance: SULFAMETHOXAZOLE\TRIMETHOPRIM
     Indication: BRONCHIECTASIS
     Route: 048
  20. MOXIFLOXACIN. [Suspect]
     Active Substance: MOXIFLOXACIN
     Indication: MYCOBACTERIUM ABSCESSUS INFECTION
     Dosage: MAINTENANCE THERAPY
     Route: 048
  21. METHYLPREDNISOLONE. [Suspect]
     Active Substance: METHYLPREDNISOLONE
     Indication: IMMUNOSUPPRESSANT DRUG THERAPY
  22. MEROPENEM. [Concomitant]
     Active Substance: MEROPENEM
     Indication: BRONCHIECTASIS
  23. AMIKACIN. [Concomitant]
     Active Substance: AMIKACIN
     Indication: MYCOBACTERIUM ABSCESSUS INFECTION
  24. AZATHIOPRINE. [Suspect]
     Active Substance: AZATHIOPRINE
     Indication: IMMUNOSUPPRESSANT DRUG THERAPY
  25. PREDNISOLONE. [Suspect]
     Active Substance: PREDNISOLONE
     Indication: MICROSCOPIC POLYANGIITIS
     Dosage: HIGH DOSE
     Route: 065
  26. AMIKACIN. [Concomitant]
     Active Substance: AMIKACIN
     Indication: MYCOBACTERIUM ABSCESSUS INFECTION
     Dosage: INDUCTION PHASE TREATMENT
     Route: 042
  27. TOBRAMYCIN. [Suspect]
     Active Substance: TOBRAMYCIN
     Indication: ATELECTASIS
  28. MOXIFLOXACIN. [Suspect]
     Active Substance: MOXIFLOXACIN
     Indication: BRONCHIECTASIS
  29. RITUXIMAB. [Suspect]
     Active Substance: RITUXIMAB
     Indication: IMMUNOSUPPRESSANT DRUG THERAPY
     Dosage: SIX MONTHLY INFUSION
     Route: 050
  30. AMIKACIN. [Concomitant]
     Active Substance: AMIKACIN
     Indication: BRONCHIECTASIS

REACTIONS (17)
  - Tendon rupture [Unknown]
  - Mycobacterium abscessus infection [Unknown]
  - Condition aggravated [Unknown]
  - Microscopic polyangiitis [Unknown]
  - Cough [Unknown]
  - Drug intolerance [None]
  - Lung disorder [Unknown]
  - Blindness [Unknown]
  - Alopecia [Unknown]
  - Nausea [Unknown]
  - Retinal vein occlusion [Unknown]
  - Diarrhoea [Unknown]
  - Hypercoagulation [None]
  - Drug resistance [Unknown]
  - Angular cheilitis [Unknown]
  - Product use in unapproved indication [Unknown]
  - Embolism [None]
